FAERS Safety Report 17352390 (Version 3)
Quarter: 2020Q2

REPORT INFORMATION
  Report Type: Report from Study
  Country: None (occurrence: CA)
  Receive Date: 20200130
  Receipt Date: 20200623
  Transmission Date: 20200713
  Serious: Yes (Other)
  Sender: FDA-Public Use
  Company Number: CA-ABBVIE-18K-028-2305506-00

PATIENT
  Age: 25 Year
  Sex: Male

DRUGS (3)
  1. HUMIRA [Suspect]
     Active Substance: ADALIMUMAB
     Indication: CROHN^S DISEASE
     Route: 058
     Dates: start: 20170201, end: 20180307
  2. HUMIRA [Suspect]
     Active Substance: ADALIMUMAB
     Route: 058
  3. HUMIRA [Suspect]
     Active Substance: ADALIMUMAB
     Route: 058
     Dates: start: 20180325

REACTIONS (28)
  - Abdominal pain [Unknown]
  - Diarrhoea [Unknown]
  - Haemorrhoids [Recovering/Resolving]
  - Fistula [Unknown]
  - Intentional product misuse [Recovered/Resolved]
  - General symptom [Unknown]
  - Haemorrhoids [Unknown]
  - Anxiety [Not Recovered/Not Resolved]
  - Depressed mood [Not Recovered/Not Resolved]
  - Acrochordon [Unknown]
  - Abdominal pain [Not Recovered/Not Resolved]
  - Weight gain poor [Recovering/Resolving]
  - Defaecation urgency [Not Recovered/Not Resolved]
  - Malaise [Not Recovered/Not Resolved]
  - Terminal ileitis [Not Recovered/Not Resolved]
  - Anal polyp [Not Recovered/Not Resolved]
  - Drug level abnormal [Not Recovered/Not Resolved]
  - Diarrhoea [Recovered/Resolved]
  - Fear of eating [Not Recovered/Not Resolved]
  - Condition aggravated [Unknown]
  - Abdominal pain [Recovered/Resolved]
  - Anorectal disorder [Recovering/Resolving]
  - Anal skin tags [Unknown]
  - Medical device site discharge [Unknown]
  - Therapeutic product effect incomplete [Not Recovered/Not Resolved]
  - Food intolerance [Recovering/Resolving]
  - Gastrointestinal wall thinning [Unknown]
  - Loss of personal independence in daily activities [Not Recovered/Not Resolved]

NARRATIVE: CASE EVENT DATE: 2017
